FAERS Safety Report 4926220-5 (Version None)
Quarter: 2006Q1

REPORT INFORMATION
  Report Type: 
  Country: None (occurrence: None)
  Receive Date: 20060228
  Receipt Date: 20051212
  Transmission Date: 20060701
  Serious: No
  Sender: FDA-Public Use
  Company Number: US-GLAXOSMITHKLINE-A0585485A

PATIENT
  Age: 51 Year
  Sex: Female

DRUGS (3)
  1. LAMICTAL [Suspect]
     Indication: BIPOLAR DISORDER
     Dosage: 50MG PER DAY
     Route: 048
     Dates: start: 20051102
  2. XANAX [Concomitant]
  3. SYNTHROID [Concomitant]

REACTIONS (5)
  - ABNORMAL DREAMS [None]
  - DYSPEPSIA [None]
  - FAECES DISCOLOURED [None]
  - INCREASED APPETITE [None]
  - PALPITATIONS [None]
